FAERS Safety Report 10591683 (Version 3)
Quarter: 2014Q4

REPORT INFORMATION
  Report Type: Spontaneous
  Country: US (occurrence: US)
  Receive Date: 20141118
  Receipt Date: 20141128
  Transmission Date: 20150529
  Serious: Yes (Death)
  Sender: FDA-Public Use
  Company Number: US-ACTELION-A-US2014-107593

PATIENT
  Age: 70 Year
  Sex: Female

DRUGS (1)
  1. VELETRI [Suspect]
     Active Substance: EPOPROSTENOL
     Indication: PULMONARY ARTERIAL HYPERTENSION
     Dosage: 7 NG/KG, PER MIN
     Route: 042
     Dates: start: 20140515

REACTIONS (4)
  - Cardiac failure [Fatal]
  - Device alarm issue [Unknown]
  - Catheter placement [Unknown]
  - Device occlusion [Unknown]

NARRATIVE: CASE EVENT DATE: 20141105
